FAERS Safety Report 10053036 (Version 2)
Quarter: 2014Q2

REPORT INFORMATION
  Report Type: Spontaneous
  Country: CL (occurrence: CL)
  Receive Date: 20140402
  Receipt Date: 20140402
  Transmission Date: 20141212
  Serious: Yes (Hospitalization, Other)
  Sender: FDA-Public Use
  Company Number: CL-PFIZER INC-2014089838

PATIENT
  Sex: Female

DRUGS (3)
  1. XALATAN [Suspect]
     Indication: GLAUCOMA
     Dosage: UNK
     Route: 047
     Dates: start: 2009
  2. ACTEBRAL [Concomitant]
  3. LOSARTAN [Concomitant]

REACTIONS (3)
  - Hip fracture [Unknown]
  - Fall [Unknown]
  - Dementia Alzheimer^s type [Unknown]
